FAERS Safety Report 4698138-7 (Version None)
Quarter: 2005Q2

REPORT INFORMATION
  Report Type: 
  Country: None (occurrence: None)
  Receive Date: 20050621
  Receipt Date: 20050608
  Transmission Date: 20051028
  Serious: Yes (Other)
  Sender: FDA-Public Use
  Company Number: 2005087475

PATIENT
  Age: 78 Year
  Sex: Female
  Weight: 72.1219 kg

DRUGS (6)
  1. NARDIL [Suspect]
     Indication: ANXIETY
     Dosage: 45 MG (15 MG, 3 IN 1 D)
  2. ALL OTHER NON-THERAPEUTIC PRODUCTS (ALL OTHER NON-THERAPEUTIC PRODUCTS [Suspect]
     Indication: ILL-DEFINED DISORDER
     Dosage: ORAL
     Route: 048
     Dates: start: 20050401
  3. YEAST (YEAST) [Suspect]
     Indication: ILL-DEFINED DISORDER
     Dosage: ORAL
     Route: 048
     Dates: start: 20050401
  4. ASPIRIN [Concomitant]
  5. CALCIUM WITH VITAMIN D (CALCIUM PHOSPHATE, CALCIUM SODIUM LACTATE, ERG [Concomitant]
  6. DIAZEPAM [Concomitant]

REACTIONS (8)
  - AGORAPHOBIA [None]
  - ANGER [None]
  - ARTHRITIS [None]
  - BODY HEIGHT DECREASED [None]
  - CRYING [None]
  - FOOD INTERACTION [None]
  - HYPERTENSION [None]
  - HYPOAESTHESIA [None]
